FAERS Safety Report 11744945 (Version 1)
Quarter: 2015Q4

REPORT INFORMATION
  Report Type: Spontaneous
  Country: JP (occurrence: JP)
  Receive Date: 20151117
  Receipt Date: 20151117
  Transmission Date: 20160304
  Serious: Yes (Other)
  Sender: FDA-Public Use
  Company Number: JP-MACLEODS PHARMACEUTICALS US LTD-MAC2015002151

PATIENT

DRUGS (2)
  1. CLOPIDOGREL [Suspect]
     Active Substance: CLOPIDOGREL BISULFATE
     Indication: ANTIPLATELET THERAPY
     Dosage: A TOTAL OF SIX TABLETS TAKEN AS A LOADING DOSE WITHOUT MUCH WATER
     Route: 048
  2. ASPIRIN. [Concomitant]
     Active Substance: ASPIRIN
     Indication: ANTIPLATELET THERAPY
     Dosage: 100 MG, UNK
     Route: 065

REACTIONS (4)
  - Back pain [Recovered/Resolved]
  - Erosive oesophagitis [Recovered/Resolved]
  - Haemoglobin decreased [None]
  - Malabsorption from application site [Recovered/Resolved]
